FAERS Safety Report 9811455 (Version 1)
Quarter: 2014Q1

REPORT INFORMATION
  Report Type: Spontaneous
  Country: US (occurrence: US)
  Receive Date: 20140110
  Receipt Date: 20140110
  Transmission Date: 20141002
  Serious: Yes (Other)
  Sender: FDA-Public Use
  Company Number: US-SANOFI-AVENTIS-2013SA044055

PATIENT
  Age: 75 Year
  Sex: Male
  Weight: 77.56 kg

DRUGS (1)
  1. PLAVIX [Suspect]

REACTIONS (1)
  - Cerebrovascular accident [Unknown]
